FAERS Safety Report 4474813-4 (Version None)
Quarter: 2004Q4

REPORT INFORMATION
  Report Type: 
  Country: None (occurrence: None)
  Receive Date: 20041012
  Receipt Date: 20041001
  Transmission Date: 20050328
  Serious: Yes (Other)
  Sender: FDA-Public Use
  Company Number: 2004-08-0382

PATIENT
  Age: 36 Year
  Sex: Male

DRUGS (11)
  1. TEMODAL [Suspect]
     Indication: OLIGODENDROGLIOMA
     Dosage: SEE IMAGE
     Route: 048
     Dates: start: 20040101, end: 20040101
  2. TEMODAL [Suspect]
     Indication: OLIGODENDROGLIOMA
     Dosage: SEE IMAGE
     Route: 048
     Dates: start: 20040628, end: 20040702
  3. TEMODAL [Suspect]
     Indication: OLIGODENDROGLIOMA
     Dosage: SEE IMAGE
     Route: 048
     Dates: start: 20040823, end: 20040827
  4. TEGRETOL [Suspect]
     Indication: CONVULSION
     Dosage: 1200 MG QD ORAL
     Route: 048
  5. CELEBREX [Suspect]
     Indication: PAIN
     Dosage: 100 MG ORAL
     Route: 048
     Dates: start: 20040629, end: 20040705
  6. NEXIUM [Suspect]
     Indication: PROPHYLAXIS
     Dosage: 40 MG ORAL
     Route: 048
     Dates: end: 20040706
  7. NEXIUM [Suspect]
     Indication: ULCER
     Dosage: 40 MG ORAL
     Route: 048
     Dates: end: 20040706
  8. SINTROM [Suspect]
     Indication: PULMONARY EMBOLISM
     Dosage: 5-6 MG QD ORAL
     Route: 048
     Dates: start: 20040701
  9. FRAXIPARINE INJECTABLE [Suspect]
     Indication: THROMBOSIS
     Dosage: 0.16 ML QD SUBCUTANEOUS
     Route: 058
  10. TRAMAL [Concomitant]
  11. CALCIUM/VITAMIN D [Concomitant]

REACTIONS (5)
  - DRUG INEFFECTIVE [None]
  - DRUG INTERACTION [None]
  - HEPATOCELLULAR DAMAGE [None]
  - PAIN [None]
  - PULMONARY EMBOLISM [None]
